FAERS Safety Report 9233671 (Version 1)
Quarter: 2013Q2

REPORT INFORMATION
  Report Type: Spontaneous
  Country: US (occurrence: US)
  Receive Date: 20130416
  Receipt Date: 20130416
  Transmission Date: 20140414
  Serious: No
  Sender: FDA-Public Use
  Company Number: US-BANPHARM-20130697

PATIENT
  Sex: Male
  Weight: 90.72 kg

DRUGS (3)
  1. ALEVE LIQUID GELS 220MG [Suspect]
     Indication: BACK PAIN
     Route: 048
     Dates: start: 201203, end: 20120314
  2. ALPRAZOLAM [Concomitant]
  3. BENICAR [Concomitant]

REACTIONS (2)
  - Drug effect incomplete [Unknown]
  - Inappropriate schedule of drug administration [Unknown]
